FAERS Safety Report 4967380-X (Version None)
Quarter: 2006Q2

REPORT INFORMATION
  Report Type: 
  Country: None (occurrence: None)
  Receive Date: 20060404
  Receipt Date: 20060324
  Transmission Date: 20061013
  Serious: Yes (Other)
  Sender: FDA-Public Use
  Company Number: SP-2006-002912

PATIENT
  Age: 84 Year
  Sex: Male
  Weight: 88 kg

DRUGS (5)
  1. OLMETEC [Suspect]
     Indication: CARDIAC FAILURE CONGESTIVE
     Dosage: 20 MG QD PO
     Route: 048
     Dates: end: 20060103
  2. ISOKET [Concomitant]
  3. FUROSEMIDE UPSA [Concomitant]
  4. OMEPRAZOL HELVEPHARM [Concomitant]
  5. ASPIRIN [Concomitant]

REACTIONS (4)
  - GASTROENTERITIS [None]
  - HYPOTENSION [None]
  - HYPOVOLAEMIA [None]
  - RENAL FAILURE ACUTE [None]
